FAERS Safety Report 8303985-6 (Version None)
Quarter: 2012Q2

REPORT INFORMATION
  Report Type: 
  Country: None (occurrence: None)
  Receive Date: 20120423
  Receipt Date: 20120413
  Transmission Date: 20120825
  Serious: Yes (Other)
  Sender: FDA-Public Use
  Company Number: US-ASTELLAS-2012US003945

PATIENT
  Sex: Male
  Weight: 54 kg

DRUGS (1)
  1. PROGRAF [Suspect]
     Indication: HEART TRANSPLANT
     Dosage: 3 MG, BID
     Route: 048
     Dates: start: 20011210

REACTIONS (21)
  - DIABETES MELLITUS [None]
  - HYPOTHYROIDISM [None]
  - ERECTILE DYSFUNCTION [None]
  - DRUG INEFFECTIVE [None]
  - RENAL TRANSPLANT [None]
  - ANTIPHOSPHOLIPID ANTIBODIES [None]
  - AMNESIA [None]
  - PERICARDIAL EFFUSION [None]
  - PSORIATIC ARTHROPATHY [None]
  - NEUROPATHY PERIPHERAL [None]
  - RENAL EMBOLISM [None]
  - RESTLESS LEGS SYNDROME [None]
  - HEART TRANSPLANT REJECTION [None]
  - SLEEP APNOEA SYNDROME [None]
  - HYPERLIPIDAEMIA [None]
  - DEPRESSION [None]
  - CEREBELLAR INFARCTION [None]
  - HIATUS HERNIA [None]
  - CONGESTIVE CARDIOMYOPATHY [None]
  - DEAFNESS [None]
  - GASTROOESOPHAGEAL REFLUX DISEASE [None]
